FAERS Safety Report 12475418 (Version 8)
Quarter: 2016Q4

REPORT INFORMATION
  Report Type: Spontaneous
  Country: JP (occurrence: JP)
  Receive Date: 20160617
  Receipt Date: 20161109
  Transmission Date: 20170207
  Serious: Yes (Hospitalization, Other)
  Sender: FDA-Public Use
  Company Number: PHJP2016JP016222

PATIENT
  Age: 0 Day
  Sex: Female
  Weight: 8.6 kg

DRUGS (4)
  1. ILARIS [Suspect]
     Active Substance: CANAKINUMAB
     Indication: FOETAL EXPOSURE DURING PREGNANCY
     Dosage: MATERNAL DOSE: 150 MG
     Route: 064
  2. ILARIS [Suspect]
     Active Substance: CANAKINUMAB
     Dosage: UNK
     Route: 058
     Dates: start: 20160720
  3. ILARIS [Suspect]
     Active Substance: CANAKINUMAB
     Dosage: UNK (EVERY 8 WEEKS)
     Route: 058
  4. ILARIS [Suspect]
     Active Substance: CANAKINUMAB
     Indication: PROPHYLAXIS
     Dosage: 2 MG/KG, UNK
     Route: 058
     Dates: start: 20160527

REACTIONS (7)
  - Respiratory syncytial virus infection [Recovering/Resolving]
  - Inflammation [Unknown]
  - Foetal exposure during pregnancy [Unknown]
  - Gene mutation [Not Recovered/Not Resolved]
  - Exposure during breast feeding [Unknown]
  - Pyrexia [Unknown]
  - C-reactive protein increased [Unknown]

NARRATIVE: CASE EVENT DATE: 20150813
